FAERS Safety Report 11057116 (Version 4)
Quarter: 2015Q2

REPORT INFORMATION
  Report Type: Spontaneous
  Country: US (occurrence: US)
  Receive Date: 20150422
  Receipt Date: 20150623
  Transmission Date: 20150821
  Serious: Yes (Hospitalization)
  Sender: FDA-Public Use
  Company Number: US-PFIZER INC-2015120217

PATIENT
  Age: 53 Year
  Sex: Female
  Weight: 79 kg

DRUGS (1)
  1. ATROPINE SULFATE/DIPHENOXYLATE HYDROCHLORIDE [Suspect]
     Active Substance: ATROPINE SULFATE\DIPHENOXYLATE HYDROCHLORIDE
     Indication: ABDOMINAL DISCOMFORT
     Dosage: 2.5 MG, 1X/DAY AS NEEDED
     Route: 048

REACTIONS (5)
  - Pruritus [Unknown]
  - Pruritus [Recovered/Resolved]
  - Product coating issue [Unknown]
  - Rash [Recovered/Resolved]
  - Dysphagia [Recovered/Resolved]
